FAERS Safety Report 10345609 (Version 2)
Quarter: 2014Q3

REPORT INFORMATION
  Report Type: Spontaneous
  Country: JP (occurrence: JP)
  Receive Date: 20140728
  Receipt Date: 20140814
  Transmission Date: 20150326
  Serious: Yes (Other)
  Sender: FDA-Public Use
  Company Number: US-ASTRAZENECA-2014SE54379

PATIENT
  Age: 0 Day
  Sex: Female
  Weight: 2.4 kg

DRUGS (2)
  1. BLOPRESS [Suspect]
     Active Substance: CANDESARTAN CILEXETIL
     Indication: HYPERTENSION
     Route: 064
     Dates: start: 2011, end: 20130806
  2. METGLUCO [Concomitant]
     Active Substance: METFORMIN HYDROCHLORIDE
     Indication: DIABETES MELLITUS
     Dosage: UNK
     Route: 064
     Dates: start: 2011, end: 20130806

REACTIONS (1)
  - Microcephaly [Recovering/Resolving]

NARRATIVE: CASE EVENT DATE: 20130902
